FAERS Safety Report 21229516 (Version 1)
Quarter: 2022Q3

REPORT INFORMATION
  Report Type: Spontaneous
  Country: US (occurrence: US)
  Receive Date: 20220818
  Receipt Date: 20220818
  Transmission Date: 20221027
  Serious: No
  Sender: FDA-Public Use
  Company Number: US-PFIZER INC-202201060741

PATIENT
  Age: 68 Year
  Sex: Female
  Weight: 58.97 kg

DRUGS (4)
  1. METRONIDAZOLE [Suspect]
     Active Substance: METRONIDAZOLE
     Indication: Helicobacter gastritis
     Dosage: 500 MG, 4X/DAY (4 TIMES A DAY)
     Dates: start: 20220517, end: 20220530
  2. TETRACYCLINE [Suspect]
     Active Substance: TETRACYCLINE
     Dosage: 500 MG, 4X/DAY (4 TIMES A DAY)
  3. OMEPRAZOLE [Concomitant]
     Active Substance: OMEPRAZOLE
     Dosage: 40 MG, 2X/DAY (TWICE A DAY)
  4. PEPTO-BISMOL [Concomitant]
     Active Substance: BISMUTH SUBSALICYLATE
     Dosage: UNK

REACTIONS (9)
  - Dysgeusia [Not Recovered/Not Resolved]
  - Trichoglossia [Unknown]
  - Glossitis [Unknown]
  - Stomatitis [Unknown]
  - Candida infection [Unknown]
  - Tremor [Unknown]
  - Heart rate increased [Unknown]
  - Weight increased [Unknown]
  - Stress [Unknown]

NARRATIVE: CASE EVENT DATE: 20220101
